FAERS Safety Report 8031764-6 (Version None)
Quarter: 2012Q1

REPORT INFORMATION
  Report Type: 
  Country: None (occurrence: None)
  Receive Date: 20120109
  Receipt Date: 20120104
  Transmission Date: 20120608
  Serious: Yes (Other)
  Sender: FDA-Public Use
  Company Number: NL-PFIZER INC-2012001965

PATIENT
  Age: 51 Year
  Sex: Female

DRUGS (5)
  1. ALPHAGAN [Concomitant]
     Indication: UVEITIS
  2. CELEBREX [Suspect]
     Indication: ANKYLOSING SPONDYLITIS
     Dosage: 100 MG, 2X/DAY
     Dates: start: 20110101
  3. VEXOL [Concomitant]
     Indication: UVEITIS
  4. DICLOFENAC [Concomitant]
     Indication: UVEITIS
     Dosage: UNK
  5. OMEPRAZOLE [Concomitant]
     Dosage: UNK

REACTIONS (8)
  - CONSTIPATION [None]
  - GASTROOESOPHAGEAL REFLUX DISEASE [None]
  - LIBIDO DECREASED [None]
  - VOMITING [None]
  - DIARRHOEA [None]
  - WEIGHT DECREASED [None]
  - INSOMNIA [None]
  - ABDOMINAL PAIN [None]
